FAERS Safety Report 24531346 (Version 4)
Quarter: 2025Q1

REPORT INFORMATION
  Report Type: Spontaneous
  Country: US (occurrence: US)
  Receive Date: 20241022
  Receipt Date: 20250303
  Transmission Date: 20250408
  Serious: Yes (Other)
  Sender: NOVO NORDISK
  Company Number: US-NOVOPROD-1301180

PATIENT
  Age: 29 Year
  Sex: Male

DRUGS (8)
  1. OZEMPIC [Suspect]
     Active Substance: SEMAGLUTIDE
     Indication: Type 2 diabetes mellitus
     Dosage: 2 MG, QW
     Route: 058
     Dates: start: 20230208
  2. METFORMIN [Concomitant]
     Active Substance: METFORMIN HYDROCHLORIDE
     Indication: Type 2 diabetes mellitus
     Dosage: 1000 MG, BID
  3. TRESIBA [Suspect]
     Active Substance: INSULIN DEGLUDEC
     Route: 058
  4. TRESIBA [Suspect]
     Active Substance: INSULIN DEGLUDEC
     Indication: Type 2 diabetes mellitus
     Route: 058
  5. TRESIBA [Suspect]
     Active Substance: INSULIN DEGLUDEC
     Route: 058
  6. LOSARTAN [Suspect]
     Active Substance: LOSARTAN
     Indication: Hypertension
  7. ATORVASTATIN [Suspect]
     Active Substance: ATORVASTATIN
     Indication: Type V hyperlipidaemia
     Dosage: 20 MG, QD
     Route: 048
  8. METAMUCIL [Concomitant]
     Active Substance: PLANTAGO SEED

REACTIONS (4)
  - Type 1 diabetes mellitus [Unknown]
  - Constipation [Unknown]
  - Diarrhoea [Unknown]
  - Hypoglycaemia [Recovered/Resolved]

NARRATIVE: CASE EVENT DATE: 20230403
